FAERS Safety Report 16139834 (Version 1)
Quarter: 2019Q2

REPORT INFORMATION
  Report Type: Spontaneous
  Country: US (occurrence: US)
  Receive Date: 20190329
  Receipt Date: 20190329
  Transmission Date: 20190711
  Serious: Yes (Hospitalization)
  Sender: FDA-Public Use
  Company Number: None

PATIENT
  Sex: Male

DRUGS (8)
  1. PULMOZYME [Suspect]
     Active Substance: DORNASE ALFA
     Indication: CYSTIC FIBROSIS
     Route: 055
     Dates: start: 20180224
  2. AMOX/K CLAV [Concomitant]
     Active Substance: AMOXICILLIN\CLAVULANATE POTASSIUM
  3. AMOXICILLIN. [Concomitant]
     Active Substance: AMOXICILLIN
  4. KITABIS PAK [Concomitant]
     Active Substance: TOBRAMYCIN
  5. TRIAMCINOLON [Concomitant]
  6. CLINDAMYCIN. [Concomitant]
     Active Substance: CLINDAMYCIN
  7. CEFDINIR. [Concomitant]
     Active Substance: CEFDINIR
  8. TOBRAMYCIN. [Concomitant]
     Active Substance: TOBRAMYCIN

REACTIONS (1)
  - Cystic fibrosis [None]
